FAERS Safety Report 23261779 (Version 1)
Quarter: 2023Q4

REPORT INFORMATION
  Report Type: Spontaneous
  Country: CN (occurrence: CN)
  Receive Date: 20231205
  Receipt Date: 20231205
  Transmission Date: 20240109
  Serious: Yes (Hospitalization, Other)
  Sender: FDA-Public Use
  Company Number: CN-AMGEN-CHNSP2023214679

PATIENT
  Age: 55 Year
  Sex: Male
  Weight: 69 kg

DRUGS (2)
  1. KYPROLIS [Suspect]
     Active Substance: CARFILZOMIB
     Indication: Neoplasm
     Dosage: 36 MILLIGRAM
     Route: 042
     Dates: start: 20231103, end: 20231104
  2. KYPROLIS [Suspect]
     Active Substance: CARFILZOMIB
     Dosage: 49 MILLIGRAM
     Route: 042
     Dates: start: 20231110, end: 20231111

REACTIONS (1)
  - Liver injury [Recovering/Resolving]

NARRATIVE: CASE EVENT DATE: 20231113
